FAERS Safety Report 22349714 (Version 8)
Quarter: 2025Q2

REPORT INFORMATION
  Report Type: Report from Study
  Country: CA (occurrence: CA)
  Receive Date: 20230522
  Receipt Date: 20250510
  Transmission Date: 20250716
  Serious: Yes (Other)
  Sender: TAKEDA
  Company Number: CA-TAKEDA-2017TUS022752

PATIENT
  Age: 69 Year
  Sex: Male

DRUGS (19)
  1. VEDOLIZUMAB [Suspect]
     Active Substance: VEDOLIZUMAB
     Indication: Crohn^s disease
  2. VEDOLIZUMAB [Suspect]
     Active Substance: VEDOLIZUMAB
  3. VEDOLIZUMAB [Suspect]
     Active Substance: VEDOLIZUMAB
  4. VEDOLIZUMAB [Suspect]
     Active Substance: VEDOLIZUMAB
  5. VEDOLIZUMAB [Suspect]
     Active Substance: VEDOLIZUMAB
  6. VEDOLIZUMAB [Suspect]
     Active Substance: VEDOLIZUMAB
  7. VEDOLIZUMAB [Suspect]
     Active Substance: VEDOLIZUMAB
  8. VEDOLIZUMAB [Suspect]
     Active Substance: VEDOLIZUMAB
  9. VEDOLIZUMAB [Suspect]
     Active Substance: VEDOLIZUMAB
     Indication: Crohn^s disease
     Dosage: 108 MILLIGRAM, Q2WEEKS
     Dates: start: 20220623
  10. VEDOLIZUMAB [Suspect]
     Active Substance: VEDOLIZUMAB
     Dosage: 108 MILLIGRAM, Q2WEEKS
  11. VEDOLIZUMAB [Suspect]
     Active Substance: VEDOLIZUMAB
     Dosage: 108 MILLIGRAM, Q2WEEKS
  12. CALCIUM\VITAMIN D [Concomitant]
     Active Substance: CALCIUM\VITAMIN D
  13. OMEPRAZOLE [Concomitant]
     Active Substance: OMEPRAZOLE
  14. ASPIRIN [Concomitant]
     Active Substance: ASPIRIN
  15. ROSUVASTATIN [Concomitant]
     Active Substance: ROSUVASTATIN
  16. PERINDOPRIL [Concomitant]
     Active Substance: PERINDOPRIL
  17. ZOLMITRIPTAN [Concomitant]
     Active Substance: ZOLMITRIPTAN
  18. BISOPROLOL [Concomitant]
     Active Substance: BISOPROLOL
  19. NITROGLYCERIN [Concomitant]
     Active Substance: NITROGLYCERIN

REACTIONS (14)
  - Seizure [Unknown]
  - Ophthalmic migraine [Recovered/Resolved]
  - Burning sensation [Unknown]
  - Osteoarthritis [Not Recovered/Not Resolved]
  - Constipation [Not Recovered/Not Resolved]
  - Arthralgia [Unknown]
  - Ear pain [Not Recovered/Not Resolved]
  - Abnormal faeces [Unknown]
  - Tinnitus [Not Recovered/Not Resolved]
  - Faeces hard [Unknown]
  - Weight decreased [Unknown]
  - Gait disturbance [Unknown]
  - Abdominal distension [Unknown]
  - Headache [Unknown]

NARRATIVE: CASE EVENT DATE: 20171012
